FAERS Safety Report 8095055-X (Version None)
Quarter: 2011Q4

REPORT INFORMATION
  Report Type: 
  Country: None (occurrence: None)
  Receive Date: 20111222
  Receipt Date: 20111027
  Transmission Date: 20120403
  Serious: Yes (Death)
  Sender: FDA-Public Use
  Company Number: UTC-011725

PATIENT
  Age: 43 Year
  Sex: Female

DRUGS (4)
  1. TYVASO [Suspect]
     Indication: PULMONARY ARTERIAL HYPERTENSION
     Dosage: 216 MCG (54 MCG, 4 IN 1 D), INHALATION
     Route: 055
     Dates: start: 20091222
  2. WARFARIN SODIUM [Concomitant]
  3. TOBI [Concomitant]
  4. TRACLEER [Concomitant]

REACTIONS (1)
  - SHOCK [None]
